FAERS Safety Report 7847127-X (Version None)
Quarter: 2011Q4

REPORT INFORMATION
  Report Type: 
  Country: None (occurrence: None)
  Receive Date: 20111025
  Receipt Date: 20111018
  Transmission Date: 20120403
  Serious: Yes (Death, Hospitalization)
  Sender: FDA-Public Use
  Company Number: JP-ASTRAZENECA-2011SE54386

PATIENT
  Age: 14840 Day
  Sex: Female
  Weight: 71 kg

DRUGS (18)
  1. ZYPREXA [Suspect]
     Indication: SCHIZOPHRENIA
     Route: 048
     Dates: start: 20110611, end: 20110630
  2. ALPRAZOLAM [Concomitant]
     Indication: MAJOR DEPRESSION
     Route: 048
     Dates: start: 20110528
  3. CELECOXIB [Concomitant]
     Indication: RHEUMATOID ARTHRITIS
     Route: 048
     Dates: start: 20101227
  4. MUCOSTA [Concomitant]
     Indication: RHEUMATOID ARTHRITIS
     Route: 048
     Dates: start: 20110601
  5. EURODIN [Concomitant]
     Indication: MAJOR DEPRESSION
     Route: 048
     Dates: start: 20110530
  6. FOLIC ACID [Concomitant]
     Indication: RHEUMATOID ARTHRITIS
     Route: 048
     Dates: start: 20100702
  7. ZYPREXA [Suspect]
     Indication: MAJOR DEPRESSION
     Route: 048
     Dates: start: 20110611, end: 20110630
  8. ROHYPNOL [Concomitant]
     Indication: MAJOR DEPRESSION
     Route: 048
     Dates: start: 20110528
  9. ALPRAZOLAM [Concomitant]
     Indication: SCHIZOPHRENIA
     Route: 048
     Dates: start: 20110528
  10. SERTRALINE HYDROCHLORIDE [Suspect]
     Indication: MAJOR DEPRESSION
     Route: 048
     Dates: start: 20110528
  11. ENBREL [Concomitant]
     Indication: RHEUMATOID ARTHRITIS
     Dates: start: 20101206
  12. SEROQUEL [Suspect]
     Indication: SCHIZOPHRENIA
     Route: 048
     Dates: start: 20110530
  13. SEROQUEL [Suspect]
     Indication: MAJOR DEPRESSION
     Route: 048
     Dates: start: 20110530
  14. EURODIN [Concomitant]
     Indication: SCHIZOPHRENIA
     Route: 048
     Dates: start: 20110530
  15. RABEPRAZOLE SODIUM [Concomitant]
     Indication: RHEUMATOID ARTHRITIS
     Route: 048
     Dates: start: 20101122
  16. AKINETON [Concomitant]
     Indication: PARKINSONISM
     Route: 048
     Dates: start: 20110630
  17. ROHYPNOL [Concomitant]
     Indication: SCHIZOPHRENIA
     Route: 048
     Dates: start: 20110528
  18. METHOTREXATE [Concomitant]
     Indication: RHEUMATOID ARTHRITIS
     Route: 048
     Dates: start: 20100422

REACTIONS (2)
  - NEUROLEPTIC MALIGNANT SYNDROME [None]
  - PARKINSONISM [None]
